FAERS Safety Report 8520161-2 (Version None)
Quarter: 2012Q3

REPORT INFORMATION
  Report Type: 
  Country: None (occurrence: None)
  Receive Date: 20120719
  Receipt Date: 20120704
  Transmission Date: 20120928
  Serious: Yes (Hospitalization, Other)
  Sender: FDA-Public Use
  Company Number: DE-UCBSA-061099

PATIENT
  Age: 38 Year
  Sex: Male

DRUGS (19)
  1. LACOSAMIDE [Suspect]
     Dosage: DAILY DOSE : 400 MG
     Dates: start: 20110801
  2. LEVETIRACETAM [Concomitant]
     Dosage: DAILY DOSE : 3000 MG
     Dates: start: 20080501, end: 20080101
  3. TOPIRAMATE [Concomitant]
     Dosage: DAILY DOSE: 100 MG
     Dates: start: 20080801
  4. OXCARBAZEPINE [Concomitant]
     Dosage: DAILY DOSE : UPTO 1800 MG/DAY
     Dates: start: 20071001
  5. LEVETIRACETAM [Concomitant]
     Dosage: DAILY DOSE : 1000 MG
     Dates: start: 20081001
  6. PHENYTOIN SODIUM [Concomitant]
     Dosage: DAILY DOSE : 100 MG
     Dates: start: 20100401
  7. LACOSAMIDE [Suspect]
     Dosage: DAILY DOSE : 500 MG
  8. LEVETIRACETAM [Concomitant]
     Dosage: DAILY DOSE : 4000 MG
     Dates: start: 20080801, end: 20080101
  9. CARBAMAZEPINE [Concomitant]
     Dosage: 800 MG RET/DAY
     Dates: start: 20060201
  10. PHENYTOIN SODIUM [Concomitant]
     Dosage: DAILY DOSE : 400 MG
     Dates: start: 20090601
  11. CARBAMAZEPINE [Concomitant]
     Dosage: VARYING DOSES
     Dates: start: 19801001, end: 19890101
  12. PHENYTOIN SODIUM [Concomitant]
     Dosage: DAILY DOSE : 900 MG
     Dates: start: 20081001
  13. VALPROIC ACID [Concomitant]
     Dosage: DAILY DOSE : 2000 MG
     Dates: start: 20090601
  14. VALPROIC ACID [Concomitant]
     Dosage: DAILY DOSE : 2300 MG
     Dates: start: 20100401
  15. VALPROIC ACID [Concomitant]
     Dosage: DAILY DOSE : 2300 MG
     Dates: start: 20110801
  16. CARBAMAZEPINE [Concomitant]
     Dosage: 200 MG RET, 1-0-2
     Dates: start: 20051101
  17. CARBAMAZEPINE [Concomitant]
     Dosage: 1200 MG RET./D
     Dates: start: 20070701
  18. OXCARBAZEPINE [Concomitant]
     Dosage: DAILY DOSE : 1200 MG
     Dates: start: 20080501, end: 20080101
  19. OXCARBAZEPINE [Concomitant]
     Dosage: DAILY DOSE : 300 MG
     Dates: start: 20080801

REACTIONS (3)
  - EPILEPSY [None]
  - RENAL FAILURE ACUTE [None]
  - ACUTE HEPATIC FAILURE [None]
